FAERS Safety Report 19500502 (Version 5)
Quarter: 2021Q3

REPORT INFORMATION
  Report Type: Spontaneous
  Country: US (occurrence: US)
  Receive Date: 20210706
  Receipt Date: 20210816
  Transmission Date: 20211014
  Serious: Yes (Other)
  Sender: FDA-Public Use
  Company Number: US-AMGEN-USASP2021101599

PATIENT
  Sex: Female

DRUGS (2)
  1. OTEZLA [Suspect]
     Active Substance: APREMILAST
     Indication: PSORIATIC ARTHROPATHY
     Dosage: UNK
     Route: 065
     Dates: end: 2021
  2. OTEZLA [Suspect]
     Active Substance: APREMILAST
     Indication: PSORIASIS

REACTIONS (3)
  - Psoriatic arthropathy [Unknown]
  - Drug hypersensitivity [Unknown]
  - Psoriasis [Unknown]
